FAERS Safety Report 8402226-9 (Version None)
Quarter: 2012Q2

REPORT INFORMATION
  Report Type: 
  Country: None (occurrence: None)
  Receive Date: 20120529
  Receipt Date: 20040203
  Transmission Date: 20120825
  Serious: Yes (Death, Hospitalization)
  Sender: FDA-Public Use
  Company Number: 02100-JPN-04-0013

PATIENT
  Age: 89 Year
  Sex: Male

DRUGS (12)
  1. FERROMIA (FERROUS CITRATE) TABLET [Concomitant]
  2. PERDIPIN (NICARDIPINE HYDROCHLORIDE) TABLET [Concomitant]
  3. SERMION (NICERGOLINE) TABLET [Concomitant]
  4. EXCELASE (ENZYMES NOS) TABLET [Concomitant]
  5. FAMOTIDINE [Concomitant]
  6. PURSENNID (SENNOSIDE) TABLET [Concomitant]
  7. SERENACE (HALOPERIDOL) TABLET [Concomitant]
  8. NITOROL R (ISOSORBIDE DINITRATE) CAPSULE [Concomitant]
  9. PLETAL [Suspect]
     Indication: CEREBRAL INFARCTION
     Dosage: 100 MG, QD, ORAL
     Route: 048
     Dates: start: 20031001, end: 20031126
  10. PLETAL [Suspect]
     Indication: PROPHYLAXIS
     Dosage: 100 MG, QD, ORAL
     Route: 048
     Dates: start: 20031001, end: 20031126
  11. NELBON (NITRAZEPAM) TABLET [Concomitant]
  12. TRICHLORMETHIAZIDE [Concomitant]

REACTIONS (4)
  - GENERAL PHYSICAL HEALTH DETERIORATION [None]
  - ACUTE MYOCARDIAL INFARCTION [None]
  - PYREXIA [None]
  - TACHYPNOEA [None]
